FAERS Safety Report 14538638 (Version 1)
Quarter: 2018Q1

REPORT INFORMATION
  Report Type: Spontaneous
  Country: CA (occurrence: CA)
  Receive Date: 20180216
  Receipt Date: 20180216
  Transmission Date: 20180509
  Serious: Yes (Life-Threatening, Hospitalization, Disabling, Other)
  Sender: FDA-Public Use
  Company Number: CA-B.I. PHARMACEUTICALS,INC./RIDGEFIELD-2018-BI-008696

PATIENT
  Age: 46 Year
  Sex: Male
  Weight: 66 kg

DRUGS (3)
  1. JARDIANCE [Suspect]
     Active Substance: EMPAGLIFLOZIN
     Indication: TYPE 2 DIABETES MELLITUS
     Route: 048
  2. TRAJENTA [Concomitant]
     Active Substance: LINAGLIPTIN
     Indication: PRODUCT USED FOR UNKNOWN INDICATION
     Route: 065
  3. METFORMIN [Concomitant]
     Active Substance: METFORMIN HYDROCHLORIDE
     Indication: PRODUCT USED FOR UNKNOWN INDICATION
     Route: 065

REACTIONS (10)
  - Bone debridement [Unknown]
  - Pain in extremity [Unknown]
  - Euglycaemic diabetic ketoacidosis [Unknown]
  - Glycosylated haemoglobin increased [Unknown]
  - Skin ulcer [Unknown]
  - Toe amputation [Unknown]
  - Wound necrosis [Unknown]
  - Erythema [Unknown]
  - Osteomyelitis [Unknown]
  - Osteonecrosis [Unknown]
